FAERS Safety Report 6615767-1 (Version None)
Quarter: 2010Q1

REPORT INFORMATION
  Report Type: 
  Country: None (occurrence: None)
  Receive Date: 20100305
  Receipt Date: 20100224
  Transmission Date: 20100710
  Serious: Yes (Other)
  Sender: FDA-Public Use
  Company Number: US-ASTRAZENECA-2010SE08041

PATIENT
  Age: 74 Year
  Sex: Female
  Weight: 47.2 kg

DRUGS (8)
  1. OMEPRAZOLE [Suspect]
     Route: 048
  2. ATENOLOL [Concomitant]
  3. LASIX [Concomitant]
  4. ASPIRIN [Concomitant]
  5. LEVOXYL [Concomitant]
  6. SPIRIVA [Concomitant]
  7. ADVAIR DISKUS 100/50 [Concomitant]
  8. NOSE SPRAY [Concomitant]
     Indication: HYPERSENSITIVITY

REACTIONS (2)
  - LUNG NEOPLASM MALIGNANT [None]
  - NAUSEA [None]
